FAERS Safety Report 5382507-6 (Version None)
Quarter: 2007Q3

REPORT INFORMATION
  Report Type: 
  Country: None (occurrence: None)
  Receive Date: 20070702
  Receipt Date: 20070502
  Transmission Date: 20080115
  Serious: Yes (Other)
  Sender: FDA-Public Use
  Company Number: PROG00207032278

PATIENT
  Age: 36 Year
  Sex: Female

DRUGS (3)
  1. PROMETRIUM [Suspect]
     Indication: PROPHYLAXIS OF ABORTION
     Dosage: DAILY ORAL DAILY DOSE
     Route: 048
  2. ASPIRIN [Suspect]
     Indication: DRUG USE FOR UNKNOWN INDICATION
     Dosage: DAILY ORAL DAILY DOSE
     Route: 048
  3. ASPIRIN [Suspect]
     Indication: ILL-DEFINED DISORDER
     Dosage: DAILY ORAL DAILY DOSE
     Route: 048

REACTIONS (1)
  - ABORTION SPONTANEOUS [None]
